FAERS Safety Report 5106149-2 (Version None)
Quarter: 2006Q3

REPORT INFORMATION
  Report Type: 
  Country: None (occurrence: None)
  Receive Date: 20060918
  Receipt Date: 20060908
  Transmission Date: 20061208
  Serious: Yes (Other)
  Sender: FDA-Public Use
  Company Number: SE-JNJFOC-20060902107

PATIENT
  Sex: Male

DRUGS (3)
  1. REMICADE [Suspect]
     Dosage: SIXTH/SEVENTH INFUSION
     Route: 042
  2. REMICADE [Suspect]
     Indication: COLITIS ULCERATIVE
     Route: 042
  3. PREDNISOLONE [Concomitant]
     Route: 065

REACTIONS (4)
  - INFUSION RELATED REACTION [None]
  - NAUSEA [None]
  - TREMOR [None]
  - URTICARIA [None]
